FAERS Safety Report 5266554-0 (Version None)
Quarter: 2007Q1

REPORT INFORMATION
  Report Type: 
  Country: None (occurrence: None)
  Receive Date: 20070315
  Receipt Date: 20070306
  Transmission Date: 20070707
  Serious: Yes (Hospitalization)
  Sender: FDA-Public Use
  Company Number: GB-PFIZER INC-2007017819

PATIENT
  Age: 71 Year
  Sex: Female

DRUGS (5)
  1. LIPITOR [Suspect]
     Route: 048
  2. ACETYLSALICYLIC ACID SRT [Concomitant]
     Route: 048
  3. RAMIPRIL [Concomitant]
     Route: 048
  4. CARDICOR [Concomitant]
     Route: 048
  5. ISOSORBIDE [Concomitant]

REACTIONS (2)
  - ILEOSTOMY [None]
  - MEDICATION RESIDUE [None]
